FAERS Safety Report 17556925 (Version 1)
Quarter: 2020Q1

REPORT INFORMATION
  Report Type: Spontaneous
  Country: US (occurrence: US)
  Receive Date: 20200318
  Receipt Date: 20200318
  Transmission Date: 20200409
  Serious: No
  Sender: FDA-Public Use
  Company Number: US-ENDO PHARMACEUTICALS INC-2019-102780

PATIENT
  Age: 76 Year
  Sex: Female
  Weight: 58.05 kg

DRUGS (8)
  1. LIDOCAINE. [Concomitant]
     Active Substance: LIDOCAINE
     Indication: NERVE BLOCK
  2. ASPIRIN                            /00002701/ [Concomitant]
     Active Substance: ASPIRIN
     Indication: PRODUCT USED FOR UNKNOWN INDICATION
  3. FISH OIL [Concomitant]
     Active Substance: FISH OIL
     Indication: PRODUCT USED FOR UNKNOWN INDICATION
  4. CALCIUM CITRATE [Concomitant]
     Active Substance: CALCIUM CITRATE
     Indication: PRODUCT USED FOR UNKNOWN INDICATION
  5. XIAFLEX [Suspect]
     Active Substance: COLLAGENASE CLOSTRIDIUM HISTOLYTICUM
     Indication: DUPUYTREN^S CONTRACTURE
     Dosage: 0.3 ML, 2 INJECTIONS
     Route: 026
     Dates: start: 20190304
  6. CRESTOR [Concomitant]
     Active Substance: ROSUVASTATIN CALCIUM
     Indication: BLOOD CHOLESTEROL
  7. ONE A DAY MULTI VITAMIN + MINERALS /08065901/ [Concomitant]
     Indication: PRODUCT USED FOR UNKNOWN INDICATION
  8. MARCAINE [Concomitant]
     Active Substance: BUPIVACAINE HYDROCHLORIDE
     Indication: NERVE BLOCK

REACTIONS (8)
  - Peripheral swelling [Recovering/Resolving]
  - Skin abrasion [Recovering/Resolving]
  - Lymphadenopathy [Recovering/Resolving]
  - Arthralgia [Recovering/Resolving]
  - Pain in extremity [Recovering/Resolving]
  - Contusion [Recovering/Resolving]
  - Skin laceration [Recovering/Resolving]
  - Musculoskeletal stiffness [Recovering/Resolving]

NARRATIVE: CASE EVENT DATE: 20190304
